FAERS Safety Report 4837401-3 (Version None)
Quarter: 2005Q4

REPORT INFORMATION
  Report Type: 
  Country: None (occurrence: None)
  Receive Date: 20051128
  Receipt Date: 20051026
  Transmission Date: 20060501
  Serious: No
  Sender: FDA-Public Use
  Company Number: JP-BRISTOL-MYERS SQUIBB COMPANY-13160155

PATIENT
  Age: 73 Year
  Sex: Male

DRUGS (1)
  1. KENACORT-A [Suspect]
     Indication: DIABETIC RETINOPATHY
     Route: 031
     Dates: start: 20040901

REACTIONS (1)
  - CYTOMEGALOVIRUS CHORIORETINITIS [None]
